FAERS Safety Report 25499019 (Version 1)
Quarter: 2025Q3

REPORT INFORMATION
  Report Type: Spontaneous
  Country: EU (occurrence: EU)
  Receive Date: 20250701
  Receipt Date: 20250701
  Transmission Date: 20251021
  Serious: Yes (Life-Threatening, Hospitalization, Other)
  Sender: AUROBINDO
  Company Number: EU-AEMPS-1702343

PATIENT
  Age: 44 Year
  Sex: Male

DRUGS (6)
  1. TOPIRAMATE [Interacting]
     Active Substance: TOPIRAMATE
     Indication: Intentional overdose
     Route: 048
     Dates: start: 20250323, end: 20250323
  2. QUETIAPINE [Interacting]
     Active Substance: QUETIAPINE
     Indication: Intentional overdose
     Route: 048
     Dates: start: 20250323, end: 20250323
  3. FLUOXETINE [Interacting]
     Active Substance: FLUOXETINE HYDROCHLORIDE
     Indication: Intentional overdose
     Route: 048
     Dates: start: 20250323, end: 20250323
  4. PREGABALIN [Interacting]
     Active Substance: PREGABALIN
     Indication: Intentional overdose
     Route: 048
     Dates: start: 20250323, end: 20250323
  5. LORMETAZEPAM [Interacting]
     Active Substance: LORMETAZEPAM
     Indication: Intentional overdose
     Route: 048
     Dates: start: 20250323, end: 20250323
  6. PREGABALIN [Concomitant]
     Active Substance: PREGABALIN
     Indication: Product used for unknown indication
     Dosage: 75 MILLIGRAM, ONCE A DAY (25 MG TABLETS EFG)
     Route: 048
     Dates: start: 20230314, end: 20250322

REACTIONS (2)
  - Intentional overdose [Recovered/Resolved]
  - Depressed level of consciousness [Recovered/Resolved]

NARRATIVE: CASE EVENT DATE: 20250323
